FAERS Safety Report 5200151-8 (Version None)
Quarter: 2006Q4

REPORT INFORMATION
  Report Type: 
  Country: None (occurrence: None)
  Receive Date: 20061016
  Receipt Date: 20060817
  Transmission Date: 20070319
  Serious: No
  Sender: FDA-Public Use
  Company Number: 2006SP003053

PATIENT
  Age: 56 Year
  Sex: Female
  Weight: 70.7611 kg

DRUGS (9)
  1. LUNESTA [Suspect]
     Indication: INSOMNIA
     Dosage: 3 MG;UNKNOWN;ORAL
     Route: 048
     Dates: start: 20060816
  2. AMBIEN [Concomitant]
  3. METOPROLOL SUCCINATE [Concomitant]
  4. COZAAR [Concomitant]
  5. HYDROCHLOROTHIAZIDE [Concomitant]
  6. ATIVAN [Concomitant]
  7. AMLODIPINE [Concomitant]
  8. CLONIDINE [Concomitant]
  9. HYDROCODONE [Concomitant]

REACTIONS (2)
  - DRUG INEFFECTIVE [None]
  - INSOMNIA [None]
